FAERS Safety Report 6268807-6 (Version None)
Quarter: 2009Q3

REPORT INFORMATION
  Report Type: 
  Country: None (occurrence: None)
  Receive Date: 20090710
  Receipt Date: 20090710
  Transmission Date: 20100115
  Serious: No
  Sender: FDA-Public Use
  Company Number: None

PATIENT
  Age: 93 Year
  Sex: Female
  Weight: 55.7924 kg

DRUGS (3)
  1. CEPHALEXIN [Suspect]
     Indication: PROPHYLAXIS
     Dosage: 1 CAPSULE 3 TIMES DAILY PO ABOUT 3 DAYS
     Route: 048
     Dates: start: 20090702, end: 20090705
  2. CEPHALEXIN [Suspect]
     Indication: TOOTH EXTRACTION
     Dosage: 1 CAPSULE 3 TIMES DAILY PO ABOUT 3 DAYS
     Route: 048
     Dates: start: 20090702, end: 20090705
  3. PREDNISONE TAB [Concomitant]

REACTIONS (1)
  - PRURITUS GENERALISED [None]
